FAERS Safety Report 24934736 (Version 1)
Quarter: 2025Q1

REPORT INFORMATION
  Report Type: Report from Study
  Country: US (occurrence: US)
  Receive Date: 20250206
  Receipt Date: 20250206
  Transmission Date: 20250408
  Serious: No
  Sender: EXELIXIS
  Company Number: US-EXELIXIS-EXL-2024-001776

PATIENT
  Sex: Male

DRUGS (20)
  1. CABOMETYX [Suspect]
     Active Substance: CABOZANTINIB S-MALATE
     Indication: Renal cancer
     Dosage: 40 MG, QD
     Route: 048
     Dates: start: 20241025
  2. CABOMETYX [Suspect]
     Active Substance: CABOZANTINIB S-MALATE
     Dosage: CUT FROM 40 MG TO 20 MG, QD
     Route: 048
     Dates: start: 20241025
  3. BENZONATATE [Concomitant]
     Active Substance: BENZONATATE
  4. DIPHENOXYLATE [Concomitant]
     Active Substance: DIPHENOXYLATE
  5. FLONASE [Concomitant]
     Active Substance: FLUTICASONE PROPIONATE
  6. METAMUCIL [Concomitant]
     Active Substance: PLANTAGO SEED
  7. MOMETASONE FUROATE [Concomitant]
     Active Substance: MOMETASONE FUROATE
  8. MONTELUKAST [Concomitant]
     Active Substance: MONTELUKAST
  9. TYLENOL [Concomitant]
     Active Substance: ACETAMINOPHEN
  10. ATORVASTATIN [Concomitant]
     Active Substance: ATORVASTATIN
  11. GABAPENTIN [Concomitant]
     Active Substance: GABAPENTIN
  12. LOSARTAN [Concomitant]
     Active Substance: LOSARTAN
  13. METFORMIN HYDROCHLORIDE [Concomitant]
     Active Substance: METFORMIN HYDROCHLORIDE
  14. ONDANSETRON [Concomitant]
     Active Substance: ONDANSETRON
  15. PANTOPRAZOLE [Concomitant]
     Active Substance: PANTOPRAZOLE
  16. TAMSULOSIN [Concomitant]
     Active Substance: TAMSULOSIN
  17. AMLODIPINE [Concomitant]
     Active Substance: AMLODIPINE BESYLATE
  18. CHLORTHALIDONE [Concomitant]
     Active Substance: CHLORTHALIDONE
  19. PRAVASTATIN [Concomitant]
     Active Substance: PRAVASTATIN
  20. ESCITALOPRAM [Concomitant]
     Active Substance: ESCITALOPRAM OXALATE
     Indication: Depression

REACTIONS (17)
  - Blister [Unknown]
  - Hyperphagia [Unknown]
  - Dizziness [Not Recovered/Not Resolved]
  - Muscle spasms [Not Recovered/Not Resolved]
  - Blood pressure increased [Unknown]
  - Dry mouth [Unknown]
  - Abdominal pain [Recovered/Resolved]
  - Asthenia [Unknown]
  - Fatigue [Unknown]
  - Back pain [Unknown]
  - Stomatitis [Recovered/Resolved]
  - Swelling [Not Recovered/Not Resolved]
  - Flatulence [Unknown]
  - Cognitive disorder [Not Recovered/Not Resolved]
  - Abdominal discomfort [Recovered/Resolved]
  - Wrong technique in product usage process [Unknown]
  - Decreased interest [Unknown]
